FAERS Safety Report 5112934-3 (Version None)
Quarter: 2006Q3

REPORT INFORMATION
  Report Type: 
  Country: None (occurrence: None)
  Receive Date: 20060920
  Receipt Date: 20060906
  Transmission Date: 20061208
  Serious: Yes (Hospitalization)
  Sender: FDA-Public Use
  Company Number: 2006PV020781

PATIENT
  Age: 58 Year
  Sex: Female
  Weight: 96.1626 kg

DRUGS (3)
  1. BYETTA [Suspect]
     Indication: DIABETES MELLITUS NON-INSULIN-DEPENDENT
     Dosage: SEE IMAGE
     Route: 058
     Dates: start: 20060201, end: 20060101
  2. BYETTA [Suspect]
     Indication: DIABETES MELLITUS NON-INSULIN-DEPENDENT
     Dosage: SEE IMAGE
     Route: 058
     Dates: start: 20060501, end: 20060501
  3. BYETTA [Suspect]
     Indication: DIABETES MELLITUS NON-INSULIN-DEPENDENT
     Dosage: SEE IMAGE
     Route: 058
     Dates: start: 20060801

REACTIONS (8)
  - DRUG EFFECT DECREASED [None]
  - FUNGAL INFECTION [None]
  - KIDNEY INFECTION [None]
  - ORAL FUNGAL INFECTION [None]
  - PAIN IN EXTREMITY [None]
  - SURGERY [None]
  - URINARY TRACT INFECTION FUNGAL [None]
  - VULVOVAGINAL MYCOTIC INFECTION [None]
